FAERS Safety Report 14733241 (Version 1)
Quarter: 2018Q2

REPORT INFORMATION
  Report Type: Spontaneous
  Country: US (occurrence: US)
  Receive Date: 20180403
  Receipt Date: 20180403
  Transmission Date: 20180711
  Serious: Yes (Hospitalization)
  Sender: FDA-Public Use
  Company Number: None

PATIENT
  Age: 43 Year
  Sex: Female

DRUGS (1)
  1. TALTZ [Suspect]
     Active Substance: IXEKIZUMAB
     Indication: PSORIASIS
     Dosage: 80MG Q4WKS SUB-Q
     Route: 058
     Dates: start: 20161011

REACTIONS (3)
  - Malaise [None]
  - Drug dose omission [None]
  - Renal disorder [None]

NARRATIVE: CASE EVENT DATE: 201803
